FAERS Safety Report 10235123 (Version 1)
Quarter: 2014Q2

REPORT INFORMATION
  Report Type: Spontaneous
  Country: US (occurrence: None)
  Receive Date: 20140612
  Receipt Date: 20140612
  Transmission Date: 20141212
  Serious: No
  Sender: FDA-Public Use
  Company Number: None

PATIENT
  Age: 33 Year
  Sex: Female
  Weight: 62.14 kg

DRUGS (1)
  1. LIDOCAINE [Suspect]
     Indication: NEURALGIA
     Dosage: UP TO 3PATCHES 12 HR ON 12 HR OFF APPLIED AS MEDICATED PATCH TO SKIN
     Dates: start: 20140105, end: 20140210

REACTIONS (7)
  - Application site irritation [None]
  - Application site pain [None]
  - Application site erythema [None]
  - Application site swelling [None]
  - Application site hypoaesthesia [None]
  - Product substitution issue [None]
  - Product formulation issue [None]
